FAERS Safety Report 25489711 (Version 1)
Quarter: 2025Q2

REPORT INFORMATION
  Report Type: Spontaneous
  Country: BR (occurrence: BR)
  Receive Date: 20250627
  Receipt Date: 20250627
  Transmission Date: 20250717
  Serious: Yes (Other)
  Sender: GENUS LIFESCIENCES
  Company Number: BR-Genus_Lifesciences-USA-ALL0580202500130

PATIENT
  Age: 48 Day
  Sex: Female

DRUGS (3)
  1. PHENYLEPHRINE HYDROCHLORIDE\PROMETHAZINE HYDROCHLORIDE [Suspect]
     Active Substance: PHENYLEPHRINE HYDROCHLORIDE\PROMETHAZINE HYDROCHLORIDE
     Indication: Anaesthesia
     Dates: start: 2025, end: 2025
  2. TETRACAINE [Suspect]
     Active Substance: TETRACAINE
     Indication: Anaesthesia
     Route: 061
     Dates: start: 2025, end: 2025
  3. LIDOCAINE HYDROCHLORIDE AND EPINEPHRINE BITARTRATE [Concomitant]
     Active Substance: EPINEPHRINE BITARTRATE\LIDOCAINE HYDROCHLORIDE
     Indication: Anaesthesia
     Dates: start: 2025, end: 2025

REACTIONS (1)
  - Angioedema [Recovered/Resolved]

NARRATIVE: CASE EVENT DATE: 20250101
